FAERS Safety Report 6233523-3 (Version None)
Quarter: 2009Q2

REPORT INFORMATION
  Report Type: 
  Country: None (occurrence: None)
  Receive Date: 20090615
  Receipt Date: 20090608
  Transmission Date: 20091009
  Serious: Yes (Other)
  Sender: FDA-Public Use
  Company Number: 2009SP012662

PATIENT
  Age: 79 Year
  Sex: Female
  Weight: 54.4316 kg

DRUGS (1)
  1. MIRALAX [Suspect]
     Indication: DRUG USE FOR UNKNOWN INDICATION
     Dosage: 17 GM; QD; PO
     Route: 048

REACTIONS (1)
  - WEIGHT DECREASED [None]
